FAERS Safety Report 13112712 (Version 8)
Quarter: 2017Q3

REPORT INFORMATION
  Report Type: Report from Study
  Country: CO (occurrence: CO)
  Receive Date: 20170113
  Receipt Date: 20170907
  Transmission Date: 20171127
  Serious: Yes (Hospitalization, Other)
  Sender: FDA-Public Use
  Company Number: CO-ROCHE-1726553

PATIENT
  Age: 36 Year
  Sex: Female
  Weight: 64 kg

DRUGS (4)
  1. CELLCEPT [Suspect]
     Active Substance: MYCOPHENOLATE MOFETIL\MYCOPHENOLATE MOFETIL HYDROCHLORIDE
     Route: 048
     Dates: start: 20150401
  2. CELLCEPT [Suspect]
     Active Substance: MYCOPHENOLATE MOFETIL\MYCOPHENOLATE MOFETIL HYDROCHLORIDE
     Indication: RENAL TRANSPLANT
     Route: 048
     Dates: start: 20150301
  3. VALIXA [Suspect]
     Active Substance: VALGANCICLOVIR
     Indication: CYTOMEGALOVIRUS INFECTION
     Route: 048
     Dates: start: 20150301, end: 20151118
  4. VALIXA [Suspect]
     Active Substance: VALGANCICLOVIR
     Route: 048
     Dates: start: 20160401

REACTIONS (10)
  - Urethral stenosis [Recovered/Resolved]
  - Pleural effusion [Recovered/Resolved]
  - Urinary tract infection [Not Recovered/Not Resolved]
  - Pneumothorax [Recovered/Resolved with Sequelae]
  - Ovarian cyst [Recovering/Resolving]
  - Cytomegalovirus infection [Recovered/Resolved]
  - Urinary tract infection [Recovered/Resolved]
  - Tuberculosis [Unknown]
  - Pneumonia [Unknown]
  - Ovarian cyst [Recovering/Resolving]

NARRATIVE: CASE EVENT DATE: 201508
